FAERS Safety Report 10254608 (Version 4)
Quarter: 2014Q4

REPORT INFORMATION
  Report Type: Spontaneous
  Country: JP (occurrence: JP)
  Receive Date: 20140624
  Receipt Date: 20141013
  Transmission Date: 20150528
  Serious: Yes (Hospitalization, Other)
  Sender: FDA-Public Use
  Company Number: PHHY2014JP061510

PATIENT
  Sex: Male

DRUGS (2)
  1. RADIATION THERAPY [Suspect]
     Active Substance: RADIATION THERAPY
     Dosage: UNK UKN, UNK
  2. GLIVEC [Suspect]
     Active Substance: IMATINIB MESYLATE
     Indication: CHRONIC MYELOID LEUKAEMIA
     Dosage: 400 MG, DAILY
     Route: 048
     Dates: start: 2004

REACTIONS (3)
  - Second primary malignancy [Unknown]
  - Hypokalaemia [Recovered/Resolved]
  - Prostate cancer [Unknown]

NARRATIVE: CASE EVENT DATE: 2014
